FAERS Safety Report 5728189-2 (Version None)
Quarter: 2008Q2

REPORT INFORMATION
  Report Type: 
  Country: None (occurrence: None)
  Receive Date: 20080501
  Receipt Date: 20020428
  Transmission Date: 20081010
  Serious: Yes (Other)
  Sender: FDA-Public Use
  Company Number: A0725286A

PATIENT
  Age: 82 Year
  Sex: Female

DRUGS (1)
  1. METHYLCELLULOSE SUSPENSION SUGAR FREE ORANGE (METHYLCELLULOSE) [Suspect]
     Indication: DRUG USE FOR UNKNOWN INDICATION
     Dosage: ORAL
     Route: 048

REACTIONS (1)
  - ANAEMIA [None]
